FAERS Safety Report 24770029 (Version 1)
Quarter: 2024Q4

REPORT INFORMATION
  Report Type: Spontaneous
  Country: FR (occurrence: FR)
  Receive Date: 20241224
  Receipt Date: 20241224
  Transmission Date: 20250115
  Serious: Yes (Hospitalization)
  Sender: AZURITY PHARMACEUTICALS
  Company Number: FR-AZURITY PHARMACEUTICALS, INC.-AZR202302-000008

PATIENT
  Age: 20 Year
  Sex: Female

DRUGS (2)
  1. TRIPTORELIN [Suspect]
     Active Substance: TRIPTORELIN
     Indication: Superovulation
     Dosage: UNK
     Route: 058
     Dates: start: 20230122, end: 20230122
  2. CHORIOGONADOTROPIN ALFA [Suspect]
     Active Substance: CHORIOGONADOTROPIN ALFA
     Indication: Superovulation
     Dosage: 250 MICROGRAM
     Route: 058
     Dates: start: 20230122, end: 20230122

REACTIONS (2)
  - Ovarian hyperstimulation syndrome [Recovering/Resolving]
  - Product use in unapproved indication [Unknown]

NARRATIVE: CASE EVENT DATE: 20230122
